FAERS Safety Report 19444943 (Version 3)
Quarter: 2022Q2

REPORT INFORMATION
  Report Type: Report from Study
  Country: NL (occurrence: NL)
  Receive Date: 20210622
  Receipt Date: 20220504
  Transmission Date: 20220720
  Serious: Yes (Other)
  Sender: FDA-Public Use
  Company Number: NL-ABBVIE-20K-114-3469070-00

PATIENT
  Age: 71 Year
  Sex: Female
  Weight: 60 kg

DRUGS (2)
  1. CARBIDOPA\LEVODOPA [Suspect]
     Active Substance: CARBIDOPA\LEVODOPA
     Indication: Parkinson^s disease
     Dosage: MD 12.5, CD 3.4, ED 3.0, REMAINS AT 16 HOURS
     Route: 050
  2. CARBIDOPA\LEVODOPA [Suspect]
     Active Substance: CARBIDOPA\LEVODOPA
     Dosage: MD: 12.5ML, CD: 2.6ML/H, ED: 3.0ML
     Route: 050

REACTIONS (30)
  - Loss of consciousness [Recovered/Resolved]
  - Emotional disorder [Not Recovered/Not Resolved]
  - Tension [Not Recovered/Not Resolved]
  - Unintentional medical device removal [Unknown]
  - Fibroma [Not Recovered/Not Resolved]
  - Mobility decreased [Not Recovered/Not Resolved]
  - Cognitive disorder [Not Recovered/Not Resolved]
  - Memory impairment [Not Recovered/Not Resolved]
  - Nervousness [Not Recovered/Not Resolved]
  - Muscle spasms [Not Recovered/Not Resolved]
  - Dyskinesia [Recovered/Resolved]
  - Stoma site discharge [Not Recovered/Not Resolved]
  - On and off phenomenon [Recovered/Resolved]
  - Orthostatic hypotension [Recovered/Resolved]
  - Dyskinesia [Not Recovered/Not Resolved]
  - Hallucination [Recovered/Resolved]
  - Middle insomnia [Not Recovered/Not Resolved]
  - Freezing phenomenon [Not Recovered/Not Resolved]
  - Living in residential institution [Not Recovered/Not Resolved]
  - Restlessness [Recovered/Resolved]
  - Stress [Not Recovered/Not Resolved]
  - Irritability [Not Recovered/Not Resolved]
  - Stoma site reaction [Not Recovered/Not Resolved]
  - Loss of personal independence in daily activities [Unknown]
  - Abnormal dreams [Recovered/Resolved]
  - Unevaluable event [Recovered/Resolved]
  - Hypertension [Not Recovered/Not Resolved]
  - Constipation [Not Recovered/Not Resolved]
  - Abdominal pain upper [Not Recovered/Not Resolved]
  - Restlessness [Not Recovered/Not Resolved]

NARRATIVE: CASE EVENT DATE: 20200618
